FAERS Safety Report 7743418-1 (Version None)
Quarter: 2011Q3

REPORT INFORMATION
  Report Type: 
  Country: None (occurrence: None)
  Receive Date: 20110912
  Receipt Date: 20110906
  Transmission Date: 20111222
  Serious: Yes (Death, Hospitalization)
  Sender: FDA-Public Use
  Company Number: PHHO2011TW12877

PATIENT
  Sex: Male
  Weight: 55.7 kg

DRUGS (12)
  1. EVEROLIMUS [Suspect]
     Indication: HEPATIC NEOPLASM MALIGNANT
     Dosage: 5 MG, UNK
     Route: 048
     Dates: start: 20110310, end: 20110726
  2. TRAMADOL HCL [Concomitant]
  3. ROSUVASTATIN [Concomitant]
  4. BISOPROLOL FUMARATE [Concomitant]
  5. HYDROCORTISONE [Concomitant]
  6. MECLIZINE [Concomitant]
  7. CINCHOCAINE [Concomitant]
  8. ESOMEPRAZOLE SODIUM [Concomitant]
  9. LAMIVUDINE [Concomitant]
  10. FUROSEMIDE [Concomitant]
  11. TRIAMCINOLONE [Concomitant]
  12. AMBROXOL [Concomitant]

REACTIONS (3)
  - HAEMORRHOIDAL HAEMORRHAGE [None]
  - MULTI-ORGAN FAILURE [None]
  - POST PROCEDURAL SEPSIS [None]
